FAERS Safety Report 7332976-7 (Version None)
Quarter: 2011Q1

REPORT INFORMATION
  Report Type: 
  Country: None (occurrence: None)
  Receive Date: 20110304
  Receipt Date: 20110221
  Transmission Date: 20110831
  Serious: Yes (Other)
  Sender: FDA-Public Use
  Company Number: BR-TYCO HEALTHCARE/MALLINCKRODT-T201100511

PATIENT
  Age: 32 Year
  Sex: Female

DRUGS (1)
  1. OPTIRAY 350 [Suspect]
     Indication: COMPUTERISED TOMOGRAM
     Dosage: 125 ML, SINGLE
     Route: 042
     Dates: start: 20110217, end: 20110217

REACTIONS (6)
  - PHARYNGEAL OEDEMA [None]
  - LOCALISED OEDEMA [None]
  - PRURITUS [None]
  - THROAT IRRITATION [None]
  - URTICARIA [None]
  - SWELLING FACE [None]
